FAERS Safety Report 6277758-2 (Version None)
Quarter: 2009Q3

REPORT INFORMATION
  Report Type: 
  Country: None (occurrence: None)
  Receive Date: 20090722
  Receipt Date: 20090716
  Transmission Date: 20100115
  Serious: Yes (Other)
  Sender: FDA-Public Use
  Company Number: B0584309A

PATIENT
  Sex: Female

DRUGS (3)
  1. TELZIR [Suspect]
     Indication: HIV INFECTION
     Dosage: 700MG TWICE PER DAY
     Route: 048
     Dates: start: 20090225, end: 20090303
  2. INTELENCE [Suspect]
     Indication: HIV INFECTION
     Dosage: 200MG TWICE PER DAY
     Route: 048
     Dates: start: 20090225, end: 20090303
  3. NORVIR [Suspect]
     Indication: HIV INFECTION
     Dosage: 1UNIT TWICE PER DAY
     Route: 048
     Dates: start: 20090225, end: 20090303

REACTIONS (5)
  - ANGIOEDEMA [None]
  - BLISTER [None]
  - GASTROINTESTINAL DISORDER [None]
  - STEVENS-JOHNSON SYNDROME [None]
  - URTICARIA [None]
